FAERS Safety Report 18026925 (Version 1)
Quarter: 2020Q3

REPORT INFORMATION
  Report Type: Spontaneous
  Country: IT (occurrence: IT)
  Receive Date: 20200715
  Receipt Date: 20200715
  Transmission Date: 20201103
  Serious: Yes (Other)
  Sender: FDA-Public Use
  Company Number: IT-PFIZER INC-2020267850

PATIENT
  Age: 28 Year
  Sex: Female

DRUGS (2)
  1. AMPLITAL [Suspect]
     Active Substance: AMPICILLIN
     Indication: PROPHYLAXIS
     Dosage: 1 G, TOTAL
     Route: 042
     Dates: start: 20090601, end: 20090601
  2. UNASYN [Suspect]
     Active Substance: AMPICILLIN SODIUM\SULBACTAM SODIUM
     Indication: PROPHYLAXIS
     Dosage: 1 G, TOTAL
     Route: 040
     Dates: start: 20090601, end: 20090601

REACTIONS (3)
  - Hypotension [Recovered/Resolved]
  - Maternal exposure during pregnancy [Unknown]
  - Dyspnoea [Recovered/Resolved]

NARRATIVE: CASE EVENT DATE: 20090601
